FAERS Safety Report 15590119 (Version 2)
Quarter: 2019Q1

REPORT INFORMATION
  Report Type: Spontaneous
  Country: PR (occurrence: PR)
  Receive Date: 20181106
  Receipt Date: 20190228
  Transmission Date: 20190417
  Serious: Yes (Death, Other)
  Sender: FDA-Public Use
  Company Number: PR-PFIZER INC-2018453001

PATIENT
  Age: 73 Year
  Sex: Female
  Weight: 54.88 kg

DRUGS (3)
  1. IBRANCE [Suspect]
     Active Substance: PALBOCICLIB
     Dosage: 125 MG, DAILY
     Route: 048
     Dates: end: 2018
  2. IBRANCE [Suspect]
     Active Substance: PALBOCICLIB
     Dosage: 100 MG, CYCLIC (1 CAP DAILY FOR 21 DAYS ON 7 DAYS OFF)
     Route: 048
     Dates: start: 20180808
  3. IBRANCE [Suspect]
     Active Substance: PALBOCICLIB
     Indication: BREAST CANCER
     Dosage: 125 MG, DAILY
     Route: 048
     Dates: start: 20180808

REACTIONS (5)
  - Death [Fatal]
  - White blood cell count decreased [Unknown]
  - Haemoglobin decreased [Unknown]
  - Neuropathy peripheral [Unknown]
  - Platelet count decreased [Unknown]

NARRATIVE: CASE EVENT DATE: 2018
